FAERS Safety Report 16387721 (Version 1)
Quarter: 2019Q2

REPORT INFORMATION
  Report Type: Spontaneous
  Country: US (occurrence: US)
  Receive Date: 20190426
  Receipt Date: 20190426
  Transmission Date: 20190711
  Serious: No
  Sender: FDA-Public Use
  Company Number: None

PATIENT
  Age: 51 Year
  Sex: Female
  Weight: 58.97 kg

DRUGS (5)
  1. ZONISAMIDE 100MG CAP GLEN [Suspect]
     Active Substance: ZONISAMIDE
     Indication: SEIZURE
     Dosage: ?          QUANTITY:100 MG MILLIGRAM(S);DURATIONN 22 YRS?
     Route: 048
     Dates: start: 199703, end: 20190321
  2. FLONASE [Concomitant]
     Active Substance: FLUTICASONE PROPIONATE
  3. PHENOBARBITAL. [Concomitant]
     Active Substance: PHENOBARBITAL
  4. CALCIUM CITRATE [Concomitant]
     Active Substance: CALCIUM CITRATE
  5. DOXYCYCLINE. [Concomitant]
     Active Substance: DOXYCYCLINE

REACTIONS (2)
  - Nipple disorder [None]
  - Hyperaesthesia [None]

NARRATIVE: CASE EVENT DATE: 2002
